FAERS Safety Report 9671856 (Version 1)
Quarter: 2013Q4

REPORT INFORMATION
  Report Type: Spontaneous
  Country: GB (occurrence: GB)
  Receive Date: 20131106
  Receipt Date: 20131106
  Transmission Date: 20140711
  Serious: Yes (Other)
  Sender: FDA-Public Use
  Company Number: GB-TEVA-442145ISR

PATIENT
  Age: 27 Year
  Sex: Female
  Weight: 72 kg

DRUGS (3)
  1. ATORVASTATIN [Suspect]
     Indication: HYPERCHOLESTEROLAEMIA
     Dosage: 40 MILLIGRAM DAILY;
     Dates: start: 201204, end: 20130331
  2. VENLAFAXINE [Suspect]
     Indication: BORDERLINE PERSONALITY DISORDER
     Dosage: 300 MILLIGRAM DAILY;
     Dates: start: 2009, end: 20131022
  3. VENLAFAXINE [Suspect]
     Indication: DEPRESSION
     Dosage: 275 MILLIGRAM DAILY;
     Dates: start: 20131022

REACTIONS (1)
  - Abortion spontaneous [Unknown]
